FAERS Safety Report 20110531 (Version 1)
Quarter: 2021Q4

REPORT INFORMATION
  Report Type: Spontaneous
  Country: US (occurrence: None)
  Receive Date: 20211124
  Receipt Date: 20211124
  Transmission Date: 20220304
  Serious: Yes (Hospitalization)
  Sender: FDA-Public Use
  Company Number: None

PATIENT

DRUGS (1)
  1. VONVENDI [Suspect]
     Active Substance: VON WILLEBRAND FACTOR (RECOMBINANT)

REACTIONS (5)
  - Product preparation error [None]
  - Product label confusion [None]
  - Product label confusion [None]
  - Product label issue [None]
  - Multiple use of single-use product [None]
